FAERS Safety Report 16944519 (Version 4)
Quarter: 2019Q4

REPORT INFORMATION
  Report Type: Report from Study
  Country: FR (occurrence: FR)
  Receive Date: 20191022
  Receipt Date: 20191121
  Transmission Date: 20200122
  Serious: Yes (Hospitalization)
  Sender: FDA-Public Use
  Company Number: NVSC2019FR011758

PATIENT
  Age: 45 Year
  Sex: Female
  Weight: 92 kg

DRUGS (10)
  1. IMODIUM [Concomitant]
     Active Substance: LOPERAMIDE HYDROCHLORIDE
     Indication: DIARRHOEA
     Dosage: UNK
     Route: 065
     Dates: start: 20190326
  2. MUPIDERM [Concomitant]
     Active Substance: MUPIROCIN
     Indication: HIDRADENITIS
     Dosage: UNK
     Route: 065
     Dates: start: 20190807
  3. PHLOROGLUCINOL [Concomitant]
     Active Substance: PHLOROGLUCINOL
     Indication: PELVIC PAIN
     Dosage: UNK
     Route: 065
     Dates: start: 20190326
  4. CLOBETASOL [Concomitant]
     Active Substance: CLOBETASOL
     Indication: HYPERKERATOSIS
     Dosage: UNK
     Route: 065
     Dates: start: 20190423
  5. LAMALINE [Concomitant]
     Indication: HEADACHE
     Dosage: UNK
     Route: 065
     Dates: start: 20190326
  6. TRAMETINIB [Suspect]
     Active Substance: TRAMETINIB
     Indication: MALIGNANT MELANOMA
     Dosage: 1.5 MG, QD
     Route: 048
     Dates: start: 20190227, end: 20191009
  7. TRAMETINIB [Suspect]
     Active Substance: TRAMETINIB
     Dosage: 1.5 MG, QD
     Route: 048
     Dates: start: 20191011
  8. ZINDACLINE [Concomitant]
     Indication: ACNE
     Dosage: UNK
     Route: 065
     Dates: start: 20190226
  9. DABRAFENIB [Suspect]
     Active Substance: DABRAFENIB
     Dosage: 200 MG, BID
     Route: 048
     Dates: start: 20191011
  10. DABRAFENIB [Suspect]
     Active Substance: DABRAFENIB
     Indication: MALIGNANT MELANOMA
     Dosage: 200 MG, BID
     Route: 048
     Dates: start: 20190227, end: 20191009

REACTIONS (1)
  - Abdominal pain upper [Recovered/Resolved]

NARRATIVE: CASE EVENT DATE: 20191010
